FAERS Safety Report 16049074 (Version 5)
Quarter: 2021Q3

REPORT INFORMATION
  Report Type: Spontaneous
  Country: US (occurrence: US)
  Receive Date: 20190307
  Receipt Date: 20210713
  Transmission Date: 20211014
  Serious: Yes (Death, Hospitalization, Other)
  Sender: FDA-Public Use
  Company Number: US-ASTRAZENECA-2019SE10764

PATIENT
  Sex: Female
  Weight: 93 kg

DRUGS (90)
  1. PREVACID [Suspect]
     Active Substance: LANSOPRAZOLE
     Dosage: GENERIC (LANSOPRAZOLE)
     Route: 065
  2. ZANTAC [Concomitant]
     Active Substance: RANITIDINE HYDROCHLORIDE
     Dosage: (OTC)
     Route: 065
  3. ZANTAC [Concomitant]
     Active Substance: RANITIDINE HYDROCHLORIDE
     Dosage: (PRESCRIPTION)
     Route: 065
  4. PRAVASTATIN. [Concomitant]
     Active Substance: PRAVASTATIN
     Indication: BLOOD CHOLESTEROL ABNORMAL
     Route: 065
     Dates: start: 2009, end: 2017
  5. AMIODARONE [Concomitant]
     Active Substance: AMIODARONE
     Indication: CARDIAC DISORDER
     Route: 065
     Dates: start: 2009, end: 2017
  6. ZYRTEC [Concomitant]
     Active Substance: CETIRIZINE HYDROCHLORIDE
     Indication: MULTIPLE ALLERGIES
     Route: 065
     Dates: start: 2009, end: 2017
  7. ATACAND HCT [Concomitant]
     Active Substance: CANDESARTAN CILEXETIL\HYDROCHLOROTHIAZIDE
  8. ALBUTEROL. [Concomitant]
     Active Substance: ALBUTEROL
  9. CODEINE [Concomitant]
     Active Substance: CODEINE
  10. PRILOSEC [Suspect]
     Active Substance: OMEPRAZOLE MAGNESIUM
     Indication: GASTROOESOPHAGEAL REFLUX DISEASE
     Route: 048
     Dates: start: 1989, end: 2016
  11. PRILOSEC [Suspect]
     Active Substance: OMEPRAZOLE MAGNESIUM
     Indication: GASTROOESOPHAGEAL REFLUX DISEASE
     Dosage: GENERIC (OMEPRAZOLE) 20+ YEARS
     Route: 065
  12. PRILOSEC [Suspect]
     Active Substance: OMEPRAZOLE MAGNESIUM
     Indication: GASTROOESOPHAGEAL REFLUX DISEASE
     Route: 048
     Dates: start: 20110816
  13. FAMOTIDINE, CALCIUM CARBONATE AND MAGNESIUM HYDROXIDE [Concomitant]
     Active Substance: CALCIUM CARBONATE\FAMOTIDINE\MAGNESIUM HYDROXIDE
     Dosage: (OTC)
     Route: 065
  14. LYRICA [Concomitant]
     Active Substance: PREGABALIN
     Indication: NEURALGIA
     Route: 048
     Dates: start: 20150322
  15. LYRICA [Concomitant]
     Active Substance: PREGABALIN
     Indication: NEURALGIA
     Route: 048
     Dates: start: 2009, end: 2017
  16. BUMEX [Concomitant]
     Active Substance: BUMETANIDE
     Route: 048
     Dates: start: 20150322
  17. ANORO ELLIPTA [Concomitant]
     Active Substance: UMECLIDINIUM BROMIDE\VILANTEROL TRIFENATATE
     Route: 048
     Dates: start: 20150322
  18. SPIRIVA [Concomitant]
     Active Substance: TIOTROPIUM BROMIDE MONOHYDRATE
     Indication: CHRONIC OBSTRUCTIVE PULMONARY DISEASE
     Route: 048
     Dates: start: 2009, end: 2017
  19. MELATONIN [Concomitant]
     Active Substance: MELATONIN
     Indication: SLEEP DISORDER
     Route: 065
     Dates: start: 2008, end: 2017
  20. KETOROLAC [Concomitant]
     Active Substance: KETOROLAC TROMETHAMINE
  21. NYSTATIN. [Concomitant]
     Active Substance: NYSTATIN
  22. PRILOSEC [Suspect]
     Active Substance: OMEPRAZOLE MAGNESIUM
     Indication: GASTROOESOPHAGEAL REFLUX DISEASE
     Dosage: 30 MINUTES BEFORE BREAKFAST
     Route: 048
     Dates: start: 20150322
  23. PREVACID 24 HR [Suspect]
     Active Substance: LANSOPRAZOLE
     Route: 065
  24. PROTONIX [Suspect]
     Active Substance: PANTOPRAZOLE SODIUM
     Dosage: GENERIC (PANTOPRAZOLE)
     Route: 065
  25. PROTONIX [Suspect]
     Active Substance: PANTOPRAZOLE SODIUM
     Dosage: GENERIC (PANTOPRAZOLE)
     Route: 065
     Dates: start: 20160706
  26. ASPIRIN. [Concomitant]
     Active Substance: ASPIRIN
     Indication: ANTICOAGULANT THERAPY
     Route: 065
     Dates: start: 2009, end: 2017
  27. DULCOLAX NOS [Concomitant]
     Active Substance: BISACODYL OR DOCUSATE SODIUM
     Indication: LAXATIVE SUPPORTIVE CARE
     Route: 065
     Dates: start: 2009, end: 2017
  28. MUCINEX [Concomitant]
     Active Substance: GUAIFENESIN
     Indication: ANTIALLERGIC THERAPY
     Route: 065
     Dates: start: 2008, end: 2017
  29. CALCIUM ACETATE. [Concomitant]
     Active Substance: CALCIUM ACETATE
  30. VANCOMYCIN [Concomitant]
     Active Substance: VANCOMYCIN
  31. IMIPENEM [Concomitant]
     Active Substance: IMIPENEM
  32. LEVOTHYROXINE. [Concomitant]
     Active Substance: LEVOTHYROXINE
     Route: 065
     Dates: start: 20070401
  33. NEXIUM [Suspect]
     Active Substance: ESOMEPRAZOLE MAGNESIUM
     Route: 048
     Dates: start: 1989, end: 2016
  34. PRILOSEC OTC [Suspect]
     Active Substance: OMEPRAZOLE MAGNESIUM
     Route: 048
     Dates: start: 1989, end: 2016
  35. NIZATIDINE. [Concomitant]
     Active Substance: NIZATIDINE
     Dosage: (RX)
     Route: 065
  36. PRAVACHOL [Concomitant]
     Active Substance: PRAVASTATIN SODIUM
     Route: 048
     Dates: start: 20150322
  37. ALLOPURINOL. [Concomitant]
     Active Substance: ALLOPURINOL
     Indication: GOUT
     Route: 065
     Dates: start: 2009, end: 2017
  38. FLORASTOR [Concomitant]
     Active Substance: SACCHAROMYCES CEREVISIAE
     Indication: PROBIOTIC THERAPY
     Route: 065
     Dates: start: 2009, end: 2017
  39. JANUVIA [Concomitant]
     Active Substance: SITAGLIPTIN PHOSPHATE
     Indication: TYPE 2 DIABETES MELLITUS
     Route: 065
     Dates: start: 2009, end: 2017
  40. ALPRAZOLAM. [Concomitant]
     Active Substance: ALPRAZOLAM
  41. AZITHROMYCIN ANHYDROUS. [Concomitant]
     Active Substance: AZITHROMYCIN ANHYDROUS
  42. BACLOFEN. [Concomitant]
     Active Substance: BACLOFEN
  43. CEPHALEXIN. [Concomitant]
     Active Substance: CEPHALEXIN
  44. FLUCONAZOLE. [Concomitant]
     Active Substance: FLUCONAZOLE
  45. INSULIN [Concomitant]
     Active Substance: INSULIN NOS
  46. VALPROIC ACID. [Concomitant]
     Active Substance: VALPROIC ACID
  47. GLIPIZIDE. [Concomitant]
     Active Substance: GLIPIZIDE
     Route: 065
     Dates: start: 20070401
  48. CARDIZEM [Concomitant]
     Active Substance: DILTIAZEM HYDROCHLORIDE
     Route: 065
     Dates: start: 20070401
  49. OMEPRAZOLE+SODIUM [Suspect]
     Active Substance: OMEPRAZOLE\SODIUM BICARBONATE
     Route: 065
  50. CELEXA [Concomitant]
     Active Substance: CITALOPRAM HYDROBROMIDE
     Indication: DEPRESSION
     Route: 048
     Dates: start: 20150322
  51. VICODIN [Concomitant]
     Active Substance: ACETAMINOPHEN\HYDROCODONE BITARTRATE
     Route: 048
     Dates: start: 20150322
  52. ALLOPURINOL. [Concomitant]
     Active Substance: ALLOPURINOL
     Indication: NEPHROLITHIASIS
     Route: 065
     Dates: start: 2009, end: 2017
  53. MILK OF MAGNESIA [Concomitant]
     Active Substance: MAGNESIUM HYDROXIDE
     Dosage: START DATE?1990S
     Route: 065
  54. PEPTO?BISMOL [Concomitant]
     Active Substance: BISMUTH SUBSALICYLATE
     Route: 065
     Dates: start: 1990
  55. AMITRIPTYLINE [Concomitant]
     Active Substance: AMITRIPTYLINE
  56. CYANOCOBALAMIN. [Concomitant]
     Active Substance: CYANOCOBALAMIN
  57. DIAZEPAM. [Concomitant]
     Active Substance: DIAZEPAM
  58. FUROSEMIDE. [Concomitant]
     Active Substance: FUROSEMIDE
  59. LORAZEPAM. [Concomitant]
     Active Substance: LORAZEPAM
  60. METOPROLOL. [Concomitant]
     Active Substance: METOPROLOL
     Route: 065
     Dates: start: 20070401
  61. PROTONIX [Suspect]
     Active Substance: PANTOPRAZOLE SODIUM
     Dosage: GENERIC (PANTOPRAZOLE)
     Route: 065
     Dates: start: 20160906
  62. MULTI VITAMIN [Concomitant]
     Active Substance: VITAMINS
     Indication: HYPOVITAMINOSIS
     Route: 065
     Dates: start: 2008, end: 2017
  63. TUMS [Concomitant]
     Active Substance: CALCIUM CARBONATE
     Dosage: START DATE?1990S
     Route: 065
  64. CIPROFLOXACIN. [Concomitant]
     Active Substance: CIPROFLOXACIN
  65. ENABLEX [Concomitant]
     Active Substance: DARIFENACIN HYDROBROMIDE
  66. HUMALOG [Concomitant]
     Active Substance: INSULIN LISPRO
  67. NEXIUM 24HR [Suspect]
     Active Substance: ESOMEPRAZOLE MAGNESIUM
     Route: 048
     Dates: start: 1989, end: 2016
  68. DEXILANT [Suspect]
     Active Substance: DEXLANSOPRAZOLE
     Route: 065
  69. DEXILANT [Suspect]
     Active Substance: DEXLANSOPRAZOLE
     Dosage: GENERIC (DEXLANSOPRAZOLE)
     Route: 065
  70. PREVACID [Suspect]
     Active Substance: LANSOPRAZOLE
     Route: 065
  71. PEPCID [Concomitant]
     Active Substance: FAMOTIDINE
     Dosage: (PRISCRIPTION)
     Route: 065
  72. ISORDIL [Concomitant]
     Active Substance: ISOSORBIDE DINITRATE
     Indication: CHEST PAIN
     Route: 048
     Dates: start: 20150322
  73. LEXAPRO [Concomitant]
     Active Substance: ESCITALOPRAM OXALATE
     Route: 048
     Dates: start: 20150322
  74. SPIRIVA [Concomitant]
     Active Substance: TIOTROPIUM BROMIDE MONOHYDRATE
     Indication: CHRONIC OBSTRUCTIVE PULMONARY DISEASE
     Route: 048
     Dates: start: 20150322
  75. ASPIRIN. [Concomitant]
     Active Substance: ASPIRIN
     Indication: PAIN
     Route: 065
     Dates: start: 2009, end: 2017
  76. IPRATROPIUM [Concomitant]
     Active Substance: IPRATROPIUM
  77. AZTREONAM. [Concomitant]
     Active Substance: AZTREONAM
  78. MAGNESIUM SULFATE. [Concomitant]
     Active Substance: MAGNESIUM SULFATE
  79. NEXIUM [Suspect]
     Active Substance: ESOMEPRAZOLE MAGNESIUM
     Dosage: GENERIC (ESOMEPRAZOLE)
     Route: 048
  80. PRILOSEC [Suspect]
     Active Substance: OMEPRAZOLE MAGNESIUM
     Indication: GASTROOESOPHAGEAL REFLUX DISEASE
     Dosage: 20+ YEARS
     Route: 048
  81. PRILOSEC [Suspect]
     Active Substance: OMEPRAZOLE MAGNESIUM
     Indication: GASTROOESOPHAGEAL REFLUX DISEASE
     Route: 048
     Dates: start: 20070401
  82. PROTONIX [Suspect]
     Active Substance: PANTOPRAZOLE SODIUM
     Route: 065
  83. NIZATIDINE. [Concomitant]
     Active Substance: NIZATIDINE
     Dosage: GENERIC
     Route: 065
  84. LEVOTHYROXINE. [Concomitant]
     Active Substance: LEVOTHYROXINE
     Indication: THYROID DISORDER
     Route: 065
     Dates: start: 2009, end: 2017
  85. RENVELA [Concomitant]
     Active Substance: SEVELAMER CARBONATE
     Indication: DIALYSIS
     Route: 065
     Dates: start: 2014, end: 2017
  86. SODIUM BICARBONATE. [Concomitant]
     Active Substance: SODIUM BICARBONATE
  87. AMLODIPINE [Concomitant]
     Active Substance: AMLODIPINE BESYLATE
  88. CLONAZEPAM. [Concomitant]
     Active Substance: CLONAZEPAM
  89. CILASTATIN [Concomitant]
     Active Substance: CILASTATIN
  90. FLUDROCORTISONE [Concomitant]
     Active Substance: FLUDROCORTISONE

REACTIONS (15)
  - Renal failure [Not Recovered/Not Resolved]
  - Renal injury [Unknown]
  - Acute kidney injury [Unknown]
  - Anxiety [Unknown]
  - Nephropathy [Not Recovered/Not Resolved]
  - Hyperkalaemia [Unknown]
  - End stage renal disease [Fatal]
  - Depression [Unknown]
  - Type 2 diabetes mellitus [Fatal]
  - Chronic kidney disease [Unknown]
  - Chronic kidney disease-mineral and bone disorder [Unknown]
  - Nephrogenic anaemia [Unknown]
  - Rebound acid hypersecretion [Unknown]
  - Hyperparathyroidism secondary [Unknown]
  - Diabetic neuropathy [Unknown]
